FAERS Safety Report 8735507 (Version 3)
Quarter: 2012Q4

REPORT INFORMATION
  Report Type: 
  Country: CA (occurrence: CA)
  Receive Date: 20120822
  Receipt Date: 20121214
  Transmission Date: 20130627
  Serious: Yes (Other)
  Sender: FDA-Public Use
  Company Number: PHHY2012CA041600

PATIENT
  Age: 82 Year
  Sex: Male

DRUGS (7)
  1. EXJADE [Suspect]
     Indication: MYELODYSPLASTIC SYNDROME
     Dosage: 1000 mg, UNK
     Route: 048
     Dates: start: 2012
  2. EXJADE [Suspect]
     Dosage: 2500 mg, UNK
     Route: 048
     Dates: end: 201207
  3. EXJADE [Suspect]
     Dosage: 500 mg, UNK
     Route: 048
     Dates: start: 201206
  4. EXJADE [Suspect]
     Dosage: 01 DF, UNK
     Route: 048
     Dates: start: 201211, end: 201211
  5. METAMUCIL [Concomitant]
  6. FLOMAX [Concomitant]
     Dosage: 10 mg, QD
     Route: 048
  7. ALTACE [Concomitant]
     Dosage: 5 mg, QD
     Route: 048

REACTIONS (10)
  - Chromaturia [Unknown]
  - Liver disorder [Unknown]
  - Decreased appetite [Unknown]
  - Asthenia [Unknown]
  - Malaise [Unknown]
  - Abdominal discomfort [Unknown]
  - Diarrhoea [Unknown]
  - Dizziness [Unknown]
  - Nausea [Recovered/Resolved]
  - Vomiting [Unknown]
